FAERS Safety Report 10238983 (Version 1)
Quarter: 2014Q2

REPORT INFORMATION
  Report Type: Spontaneous
  Country: US (occurrence: US)
  Receive Date: 20140616
  Receipt Date: 20140616
  Transmission Date: 20141212
  Serious: No
  Sender: FDA-Public Use
  Company Number: US-009507513-1406USA003470

PATIENT
  Age: 68 Year
  Sex: Male

DRUGS (6)
  1. TICE BCG LIVE [Suspect]
     Indication: BLADDER CANCER
     Dosage: 50 MG; ONCE A WEEK
     Dates: start: 20140605
  2. HYDROCODONE [Concomitant]
     Dosage: UNK
  3. ACETAMINOPHEN [Concomitant]
     Dosage: UNK
     Route: 048
  4. HYDROCHLOROTHIAZIDE [Concomitant]
     Dosage: UNK
  5. METOPROLOL TARTRATE [Concomitant]
     Dosage: UNK
  6. FLOMAX (TAMSULOSIN HYDROCHLORIDE) [Concomitant]
     Dosage: UNK

REACTIONS (1)
  - Blood urine present [Recovering/Resolving]
